FAERS Safety Report 25761288 (Version 1)
Quarter: 2025Q3

REPORT INFORMATION
  Report Type: Spontaneous
  Country: US (occurrence: None)
  Receive Date: 20250903
  Receipt Date: 20250903
  Transmission Date: 20251020
  Serious: Yes (Death)
  Sender: FDA-CTU
  Company Number: None

PATIENT
  Age: 86 Year
  Sex: Male

DRUGS (1)
  1. NUBEQA [Suspect]
     Active Substance: DAROLUTAMIDE
     Indication: Pulmonary arterial hypertension
     Dosage: 600 MG TWICE  DAY ORAL
     Route: 048
     Dates: start: 20210701

REACTIONS (1)
  - Lung disorder [None]

NARRATIVE: CASE EVENT DATE: 20250824
